FAERS Safety Report 21595505 (Version 6)
Quarter: 2024Q1

REPORT INFORMATION
  Report Type: Spontaneous
  Country: US (occurrence: US)
  Receive Date: 20221115
  Receipt Date: 20240321
  Transmission Date: 20240410
  Serious: Yes (Hospitalization, Other)
  Sender: FDA-Public Use
  Company Number: US-GSKCCFUS-Case-01554328_AE-87906

PATIENT

DRUGS (3)
  1. BENLYSTA [Suspect]
     Active Substance: BELIMUMAB
     Indication: Product used for unknown indication
     Dosage: 200 MG
     Dates: start: 20221109
  2. BENLYSTA [Suspect]
     Active Substance: BELIMUMAB
     Indication: Product used for unknown indication
     Dosage: 200 MG
  3. BENLYSTA [Suspect]
     Active Substance: BELIMUMAB

REACTIONS (12)
  - Hospitalisation [Not Recovered/Not Resolved]
  - Syncope [Unknown]
  - Salmonellosis [Unknown]
  - Systemic lupus erythematosus [Unknown]
  - Injection site pain [Unknown]
  - Hypotension [Unknown]
  - Chest pain [Unknown]
  - Pain [Unknown]
  - Wrong technique in device usage process [Unknown]
  - Incorrect dose administered [Unknown]
  - Product dose omission issue [Unknown]
  - Product complaint [Unknown]

NARRATIVE: CASE EVENT DATE: 20221109
